FAERS Safety Report 5589387-4 (Version None)
Quarter: 2008Q1

REPORT INFORMATION
  Report Type: 
  Country: None (occurrence: None)
  Receive Date: 20080114
  Receipt Date: 20080109
  Transmission Date: 20080703
  Serious: Yes (Other)
  Sender: FDA-Public Use
  Company Number: US-BRISTOL-MYERS SQUIBB COMPANY-14035471

PATIENT
  Age: 42 Year
  Sex: Female
  Weight: 95 kg

DRUGS (8)
  1. GLUCOPHAGE [Suspect]
     Indication: DIABETES MELLITUS
     Dosage: STOPPED ON 31-AUG-2007 AND RESTARTED.
     Route: 048
     Dates: start: 20070501
  2. PROVIGIL [Suspect]
     Indication: NARCOLEPSY
     Dosage: STOPPED ON 31-AUG-2007 AND RESTARTED.
     Route: 048
     Dates: start: 20000101
  3. IMODIUM ADVANCED [Suspect]
     Route: 048
  4. AMBIEN [Concomitant]
     Dates: start: 20060101
  5. RITALIN [Concomitant]
     Dates: start: 19870101
  6. LANTUS [Concomitant]
     Dates: start: 20070501
  7. PRAVACHOL [Concomitant]
     Dates: start: 20070501
  8. CO-Q-10 [Concomitant]
     Dates: start: 20070501

REACTIONS (3)
  - ANAPHYLACTIC REACTION [None]
  - BLOOD GLUCOSE DECREASED [None]
  - RASH PRURITIC [None]
